FAERS Safety Report 19765003 (Version 5)
Quarter: 2023Q1

REPORT INFORMATION
  Report Type: Report from Study
  Country: DE (occurrence: DE)
  Receive Date: 20210830
  Receipt Date: 20230103
  Transmission Date: 20230418
  Serious: Yes (Other)
  Sender: FDA-Public Use
  Company Number: DE-ROCHE-2331979

PATIENT
  Age: 39 Year
  Sex: Female

DRUGS (14)
  1. COMIRNATY [Suspect]
     Active Substance: TOZINAMERAN
     Indication: COVID-19 immunisation
     Dosage: DOSE NUMBER UNKNOWN, SINGLE
     Route: 065
     Dates: start: 202104, end: 202104
  2. RITUXIMAB [Suspect]
     Active Substance: RITUXIMAB
     Indication: Relapsing-remitting multiple sclerosis
     Dosage: UNK (DOSAGE ACCORDING TO BODY WEIGHT)
     Route: 042
     Dates: start: 20190510
  3. RITUXIMAB [Suspect]
     Active Substance: RITUXIMAB
     Dosage: 250 MG, DECREASED DOSE
     Route: 042
     Dates: start: 202012
  4. RITUXIMAB [Suspect]
     Active Substance: RITUXIMAB
     Dosage: 250 MG, DOSAGE ACCORDING TO BODY WEIGHT
     Route: 042
     Dates: start: 202106
  5. MABTHERA [Suspect]
     Active Substance: RITUXIMAB
     Indication: Relapsing-remitting multiple sclerosis
     Dosage: DOSAGE ACCORDING TO BODY WEIGHT
     Route: 042
     Dates: start: 20190510
  6. MABTHERA [Suspect]
     Active Substance: RITUXIMAB
     Dosage: DECREASED DOSE
     Route: 042
     Dates: start: 202012
  7. MABTHERA [Suspect]
     Active Substance: RITUXIMAB
     Dosage: DOSAGE ACCORDING TO BODY WEIGHT
     Route: 042
     Dates: start: 202106
  8. MABTHERA [Suspect]
     Active Substance: RITUXIMAB
     Dosage: DOSAGE ACCORDING TO BODY WEIGHT
     Route: 042
     Dates: start: 202205
  9. METOPROLOL SUCCINATE [Concomitant]
     Active Substance: METOPROLOL SUCCINATE
     Dosage: UNK
  10. ESCITALOPRAM [Concomitant]
     Active Substance: ESCITALOPRAM OXALATE
     Dosage: 20 MG
  11. DESLORATADINE [Concomitant]
     Active Substance: DESLORATADINE
     Dosage: 5 MG
  12. VALDOXAN [Concomitant]
     Active Substance: AGOMELATINE
     Dosage: 25 MG
  13. CAFFEINE [Concomitant]
     Active Substance: CAFFEINE
     Dosage: UNK
  14. VITAMIN D3 [Concomitant]
     Active Substance: CHOLECALCIFEROL
     Dosage: UNK

REACTIONS (13)
  - Immunodeficiency [Not Recovered/Not Resolved]
  - Headache [Recovered/Resolved]
  - Pain in extremity [Recovered/Resolved]
  - Alopecia [Not Recovered/Not Resolved]
  - Iron deficiency [Recovered/Resolved]
  - Migraine with aura [Recovered/Resolved]
  - Joint instability [Not Recovered/Not Resolved]
  - Perioral dermatitis [Recovering/Resolving]
  - Skin disorder [Recovered/Resolved]
  - Fatigue [Not Recovered/Not Resolved]
  - Limb discomfort [Not Recovered/Not Resolved]
  - Ill-defined disorder [Not Recovered/Not Resolved]
  - Off label use [Unknown]

NARRATIVE: CASE EVENT DATE: 20190510
